FAERS Safety Report 7684994-7 (Version None)
Quarter: 2011Q3

REPORT INFORMATION
  Report Type: 
  Country: None (occurrence: None)
  Receive Date: 20110816
  Receipt Date: 20110810
  Transmission Date: 20111222
  Serious: Yes (Hospitalization, Other)
  Sender: FDA-Public Use
  Company Number: US-AMGEN-USASP2011038510

PATIENT
  Age: 55 Year
  Sex: Male
  Weight: 66.667 kg

DRUGS (5)
  1. PREDNISONE [Concomitant]
     Dosage: 10 MG, QD
     Route: 048
  2. PLAQUENIL [Concomitant]
  3. EPOGEN [Suspect]
     Indication: PRODUCT USED FOR UNKNOWN INDICATION
  4. CORTICOSTEROIDS [Concomitant]
  5. NPLATE [Suspect]
     Indication: IDIOPATHIC THROMBOCYTOPENIC PURPURA
     Dosage: 140 A?G, QWK
     Dates: start: 20090320

REACTIONS (12)
  - FLUID OVERLOAD [None]
  - PNEUMONIA [None]
  - HOSPITALISATION [None]
  - ANAEMIA [None]
  - THROMBOCYTOPENIA [None]
  - LEUKOCYTOSIS [None]
  - COLON CANCER [None]
  - ILEUS [None]
  - IRON DEFICIENCY ANAEMIA [None]
  - BLOOD FOLATE DECREASED [None]
  - CARDIAC FAILURE CONGESTIVE [None]
  - RENAL FAILURE CHRONIC [None]
